FAERS Safety Report 5897029-3 (Version None)
Quarter: 2008Q3

REPORT INFORMATION
  Report Type: 
  Country: None (occurrence: None)
  Receive Date: 20080924
  Receipt Date: 20080320
  Transmission Date: 20090109
  Serious: Yes (Other)
  Sender: FDA-Public Use
  Company Number: US-ASTRAZENECA-2008UW05726

PATIENT
  Age: 22 Year
  Sex: Male
  Weight: 83.9 kg

DRUGS (3)
  1. SEROQUEL [Suspect]
     Indication: ANXIETY
     Route: 048
  2. SEROQUEL [Suspect]
     Indication: DEPRESSION
     Route: 048
  3. XANAX [Concomitant]

REACTIONS (3)
  - DYSPNOEA [None]
  - EYE SWELLING [None]
  - SWOLLEN TONGUE [None]
